FAERS Safety Report 21617748 (Version 3)
Quarter: 2023Q4

REPORT INFORMATION
  Report Type: Spontaneous
  Country: FR (occurrence: FR)
  Receive Date: 20221119
  Receipt Date: 20231103
  Transmission Date: 20240109
  Serious: Yes (Other)
  Sender: FDA-Public Use
  Company Number: FR-MYLANLABS-2022M1121134

PATIENT
  Age: 70 Year
  Sex: Female

DRUGS (2)
  1. PREDNISONE [Suspect]
     Active Substance: PREDNISONE
     Indication: Myelodysplastic syndrome
     Dosage: 15 MILLIGRAM, ONCE A DAY,(15 MILLIGRAM, QD)
     Route: 065
  2. AZACITIDINE [Suspect]
     Active Substance: AZACITIDINE
     Indication: Myelodysplastic syndrome
     Dosage: UNK, CYCLICAL,(CYCLE, RECEIVED 6 CYCLES)
     Route: 065

REACTIONS (3)
  - Cytopenia [Unknown]
  - Drug dependence [Unknown]
  - Osteoporotic fracture [Unknown]
